FAERS Safety Report 12973186 (Version 1)
Quarter: 2016Q4

REPORT INFORMATION
  Report Type: Report from Study
  Country: None (occurrence: DE)
  Receive Date: 20161124
  Receipt Date: 20161124
  Transmission Date: 20170207
  Serious: Yes (Other)
  Sender: FDA-Public Use
  Company Number: DE-ABBVIE-16K-062-1786648-00

PATIENT
  Age: 25 Year
  Sex: Female

DRUGS (2)
  1. LEANOVA [Concomitant]
     Indication: PRODUCT USED FOR UNKNOWN INDICATION
  2. HUMIRA [Suspect]
     Active Substance: ADALIMUMAB
     Indication: CROHN^S DISEASE
     Route: 058
     Dates: start: 201402

REACTIONS (4)
  - Dislocation of vertebra [Recovering/Resolving]
  - Road traffic accident [Recovering/Resolving]
  - Post-traumatic neck syndrome [Recovering/Resolving]
  - Spinal pain [Recovering/Resolving]

NARRATIVE: CASE EVENT DATE: 20161104
